FAERS Safety Report 13680075 (Version 1)
Quarter: 2017Q2

REPORT INFORMATION
  Report Type: Spontaneous
  Country: US (occurrence: US)
  Receive Date: 20170622
  Receipt Date: 20170622
  Transmission Date: 20170912
  Serious: No
  Sender: FDA-Public Use
  Company Number: US-IPSEN BIOSCIENCE, INC.-MER-2017-000026

PATIENT

DRUGS (1)
  1. ONIVYDE [Suspect]
     Active Substance: IRINOTECAN HYDROCHLORIDE
     Indication: PANCREATIC CARCINOMA
     Dosage: 58 MG/M2, Q2WK
     Route: 042
     Dates: start: 20170125

REACTIONS (1)
  - General physical health deterioration [Unknown]
